FAERS Safety Report 6022665-3 (Version None)
Quarter: 2008Q4

REPORT INFORMATION
  Report Type: 
  Country: None (occurrence: None)
  Receive Date: 20081230
  Receipt Date: 20080710
  Transmission Date: 20090506
  Serious: No
  Sender: FDA-Public Use
  Company Number: US-BAYER-200813074BCC

PATIENT
  Age: 45 Year
  Sex: Male
  Weight: 73 kg

DRUGS (3)
  1. ALEVE (CAPLET) [Suspect]
     Indication: BACK PAIN
     Dosage: TOTAL DAILY DOSE: 220 MG  UNIT DOSE: 220 MG
     Route: 048
     Dates: end: 20080705
  2. PROTONIX [Concomitant]
  3. SINGULAIR [Concomitant]

REACTIONS (6)
  - ERYTHEMA [None]
  - FEELING ABNORMAL [None]
  - FEELING DRUNK [None]
  - HYPERSENSITIVITY [None]
  - RASH MACULAR [None]
  - SKIN WARM [None]
